FAERS Safety Report 10521511 (Version 1)
Quarter: 2014Q4

REPORT INFORMATION
  Report Type: Spontaneous
  Country: US (occurrence: None)
  Receive Date: 20141014
  Receipt Date: 20141014
  Transmission Date: 20150528
  Serious: No
  Sender: FDA-Public Use
  Company Number: None

PATIENT

DRUGS (1)
  1. MANNITOL. [Suspect]
     Active Substance: MANNITOL

REACTIONS (3)
  - Product packaging confusion [None]
  - Drug monitoring procedure not performed [None]
  - Wrong drug administered [None]
